FAERS Safety Report 8467037-7 (Version None)
Quarter: 2012Q2

REPORT INFORMATION
  Report Type: 
  Country: None (occurrence: None)
  Receive Date: 20120626
  Receipt Date: 20120613
  Transmission Date: 20120825
  Serious: No
  Sender: FDA-Public Use
  Company Number: US-ASTRAZENECA-2012SE39525

PATIENT
  Age: 22688 Day
  Sex: Male
  Weight: 72.6 kg

DRUGS (2)
  1. VICODIN [Concomitant]
     Indication: MIGRAINE
  2. ZOMIG [Suspect]
     Indication: MIGRAINE
     Dosage: 5 MG, AS NEEDED UP TO 2 PER DAY
     Route: 045
     Dates: start: 20090101

REACTIONS (2)
  - MIGRAINE [None]
  - DRUG INEFFECTIVE [None]
